FAERS Safety Report 21928447 (Version 2)
Quarter: 2023Q1

REPORT INFORMATION
  Report Type: Report from Study
  Country: US (occurrence: US)
  Receive Date: 20230130
  Receipt Date: 20230201
  Transmission Date: 20230417
  Serious: Yes (Other)
  Sender: FDA-Public Use
  Company Number: US-ABBVIE-4288001

PATIENT
  Age: 66 Year
  Sex: Female

DRUGS (1)
  1. SKYRIZI [Suspect]
     Active Substance: RISANKIZUMAB-RZAA
     Indication: Psoriasis
     Route: 058
     Dates: start: 20220708

REACTIONS (7)
  - Fall [Recovering/Resolving]
  - Ankle fracture [Recovering/Resolving]
  - Joint swelling [Recovering/Resolving]
  - Joint dislocation [Recovering/Resolving]
  - Incorrect product administration duration [Unknown]
  - Ankle operation [Recovering/Resolving]
  - Ankle fracture [Unknown]

NARRATIVE: CASE EVENT DATE: 20221225
